FAERS Safety Report 14656614 (Version 1)
Quarter: 2018Q1

REPORT INFORMATION
  Report Type: Spontaneous
  Country: US (occurrence: US)
  Receive Date: 20180319
  Receipt Date: 20180319
  Transmission Date: 20180509
  Serious: Yes (Hospitalization)
  Sender: FDA-Public Use
  Company Number: US-BEH-2018088778

PATIENT
  Sex: Female
  Weight: 72.56 kg

DRUGS (37)
  1. VITAMIN D                          /00107901/ [Concomitant]
     Active Substance: ERGOCALCIFEROL
  2. CYANOCOBALAMIN. [Concomitant]
     Active Substance: CYANOCOBALAMIN
  3. EPIPEN [Concomitant]
     Active Substance: EPINEPHRINE
  4. INCRELEX [Concomitant]
     Active Substance: MECASERMIN
  5. NASONEX [Concomitant]
     Active Substance: MOMETASONE FUROATE
  6. LAMICTAL [Concomitant]
     Active Substance: LAMOTRIGINE
  7. PERCOCET                           /00446701/ [Concomitant]
     Active Substance: ACETAMINOPHEN\OXYCODONE HYDROCHLORIDE\OXYCODONE TEREPHTHALATE
  8. TOPROL XL [Concomitant]
     Active Substance: METOPROLOL SUCCINATE
  9. TRANEXAMIC [Concomitant]
  10. GABAPENTIN. [Concomitant]
     Active Substance: GABAPENTIN
  11. BERINERT [Suspect]
     Active Substance: HUMAN C1-ESTERASE INHIBITOR
     Indication: HEREDITARY ANGIOEDEMA
     Dosage: 1000 IU, EVERY 3 DAYS
     Route: 042
     Dates: start: 20161107
  12. ALBUTEROL                          /00139501/ [Concomitant]
     Active Substance: ALBUTEROL
  13. LEVOTHYROXINE. [Concomitant]
     Active Substance: LEVOTHYROXINE
  14. GAMMAGARD [Concomitant]
     Active Substance: HUMAN IMMUNOGLOBULIN G
  15. TROSPIUM [Concomitant]
     Active Substance: TROSPIUM
  16. FIRAZYR [Concomitant]
     Active Substance: ICATIBANT ACETATE
  17. DULERA [Concomitant]
     Active Substance: FORMOTEROL FUMARATE DIHYDRATE\MOMETASONE FUROATE
  18. NORMAL SALINE [Concomitant]
     Active Substance: SODIUM CHLORIDE
  19. IMITREX [Concomitant]
     Active Substance: SUMATRIPTAN SUCCINATE
  20. ZOVIRAX [Concomitant]
     Active Substance: ACYCLOVIR
  21. DIPHENHYDRAMINE. [Concomitant]
     Active Substance: DIPHENHYDRAMINE
  22. IBUPROFEN. [Concomitant]
     Active Substance: IBUPROFEN
  23. TRAZODONE [Concomitant]
     Active Substance: TRAZODONE HYDROCHLORIDE
  24. AMITRIPTYLINE [Concomitant]
     Active Substance: AMITRIPTYLINE
  25. LIDOCAINE. [Concomitant]
     Active Substance: LIDOCAINE
  26. CINRYZE [Concomitant]
     Active Substance: HUMAN C1-ESTERASE INHIBITOR
  27. FLUOXETINE [Concomitant]
     Active Substance: FLUOXETINE HYDROCHLORIDE
  28. BERINERT [Suspect]
     Active Substance: HUMAN C1-ESTERASE INHIBITOR
     Indication: PROPHYLAXIS
     Dosage: UNK
     Route: 042
  29. LMX                                /00033401/ [Concomitant]
  30. TYLENOL [Concomitant]
     Active Substance: ACETAMINOPHEN
  31. VITAMIN D [Concomitant]
     Active Substance: CHOLECALCIFEROL
  32. ZOVIRAX [Concomitant]
     Active Substance: ACYCLOVIR
  33. HEPARIN [Concomitant]
     Active Substance: HEPARIN SODIUM
  34. ZOFRAN [Concomitant]
     Active Substance: ONDANSETRON HYDROCHLORIDE
  35. ESOMEPRAZOLE [Concomitant]
     Active Substance: ESOMEPRAZOLE
  36. SODIUM CHLORIDE. [Concomitant]
     Active Substance: SODIUM CHLORIDE
  37. ABILIFY [Concomitant]
     Active Substance: ARIPIPRAZOLE

REACTIONS (1)
  - Abdominoplasty [Unknown]
